FAERS Safety Report 7741992-2 (Version None)
Quarter: 2011Q3

REPORT INFORMATION
  Report Type: 
  Country: None (occurrence: None)
  Receive Date: 20110912
  Receipt Date: 20110906
  Transmission Date: 20111222
  Serious: Yes (Life-Threatening, Hospitalization)
  Sender: FDA-Public Use
  Company Number: PH-JNJFOC-20081201068

PATIENT
  Sex: Female
  Weight: 48 kg

DRUGS (35)
  1. GOLIMUMAB [Suspect]
     Route: 058
     Dates: start: 20080910
  2. GOLIMUMAB [Suspect]
     Route: 058
     Dates: start: 20080813
  3. PLACEBO [Suspect]
     Route: 058
     Dates: start: 20080416
  4. PLACEBO [Suspect]
     Route: 058
     Dates: start: 20070517
  5. PLACEBO [Suspect]
     Route: 058
     Dates: start: 20070322
  6. PLACEBO [Suspect]
     Route: 058
     Dates: start: 20071004
  7. METHOTREXATE [Suspect]
     Indication: RHEUMATOID ARTHRITIS
     Route: 048
     Dates: start: 20070906, end: 20080225
  8. METHOTREXATE [Suspect]
     Route: 048
     Dates: start: 20070322, end: 20070522
  9. MOBIC [Concomitant]
     Route: 048
     Dates: start: 20070725
  10. PLACEBO [Suspect]
     Route: 058
     Dates: start: 20070718
  11. FOLIC ACID [Concomitant]
     Route: 048
     Dates: start: 20070223
  12. GOLIMUMAB [Suspect]
     Route: 058
     Dates: start: 20110706
  13. PLACEBO [Suspect]
     Route: 058
     Dates: start: 20071220
  14. PLACEBO [Suspect]
     Route: 058
     Dates: start: 20070419
  15. METHOTREXATE [Suspect]
     Route: 048
     Dates: start: 20070222, end: 20070301
  16. NEUROBION [Concomitant]
     Route: 048
     Dates: start: 20060601
  17. PREDNISONE [Concomitant]
     Route: 048
     Dates: start: 20061206
  18. GOLIMUMAB [Suspect]
     Route: 058
     Dates: start: 20080621
  19. PLACEBO [Suspect]
     Route: 058
     Dates: start: 20071024
  20. PLACEBO [Suspect]
     Route: 058
     Dates: start: 20070221
  21. METHOTREXATE [Suspect]
     Route: 048
     Dates: start: 20070308, end: 20070315
  22. CALTRATE PLUS [Concomitant]
     Route: 048
     Dates: start: 20061009
  23. GOLIMUMAB [Suspect]
     Route: 058
     Dates: start: 20090225
  24. PLACEBO [Suspect]
     Indication: RHEUMATOID ARTHRITIS
     Route: 058
     Dates: start: 20080131
  25. PLACEBO [Suspect]
     Route: 058
     Dates: start: 20071204
  26. PLACEBO [Suspect]
     Route: 058
     Dates: start: 20070906
  27. PLACEBO [Suspect]
     Route: 058
     Dates: start: 20070813
  28. METHOTREXATE [Suspect]
     Route: 048
     Dates: start: 20070329, end: 20070329
  29. ISONIAZID [Concomitant]
     Route: 048
     Dates: start: 20070220
  30. GOLIMUMAB [Suspect]
     Route: 058
     Dates: start: 20081119
  31. PLACEBO [Suspect]
     Route: 058
     Dates: start: 20070607
  32. GOLIMUMAB [Suspect]
     Indication: RHEUMATOID ARTHRITIS
     Route: 058
     Dates: start: 20081010
  33. GOLIMUMAB [Suspect]
     Route: 058
     Dates: start: 20080521
  34. GOLIMUMAB [Suspect]
     Route: 058
     Dates: start: 20080725
  35. METHOTREXATE [Suspect]
     Route: 048
     Dates: start: 20070405, end: 20070830

REACTIONS (4)
  - CATARACT [None]
  - SEPSIS [None]
  - PNEUMONIA [None]
  - JAUNDICE CHOLESTATIC [None]
